FAERS Safety Report 19078247 (Version 1)
Quarter: 2021Q1

REPORT INFORMATION
  Report Type: Spontaneous
  Country: US (occurrence: US)
  Receive Date: 20210331
  Receipt Date: 20210331
  Transmission Date: 20210420
  Serious: No
  Sender: FDA-Public Use
  Company Number: US-TEVA-2021-US-1894878

PATIENT
  Age: 64 Year
  Sex: Female

DRUGS (1)
  1. NEFAZODONE [Suspect]
     Active Substance: NEFAZODONE
     Dosage: TAKING FOR 25 YEARS
     Route: 065

REACTIONS (2)
  - Withdrawal syndrome [Unknown]
  - Feeling abnormal [Unknown]
